FAERS Safety Report 19903806 (Version 1)
Quarter: 2021Q4

REPORT INFORMATION
  Report Type: Other
  Country: US (occurrence: US)
  Receive Date: 20211001
  Receipt Date: 20211001
  Transmission Date: 20220303
  Serious: No
  Sender: FDA-Public Use
  Company Number: US-ROCHE-2920641

PATIENT
  Age: 36 Year
  Sex: Female
  Weight: 54.48 kg

DRUGS (3)
  1. OCREVUS [Suspect]
     Active Substance: OCRELIZUMAB
     Indication: Multiple sclerosis
     Route: 042
     Dates: start: 2019
  2. BACLOFEN [Concomitant]
     Active Substance: BACLOFEN
     Dosage: ONLY TAKES IT 3 TIMES A DAY
     Route: 048
  3. AMPYRA [Concomitant]
     Active Substance: DALFAMPRIDINE
     Route: 048

REACTIONS (2)
  - Asthenia [Not Recovered/Not Resolved]
  - Hepatitis B virus test positive [Not Recovered/Not Resolved]

NARRATIVE: CASE EVENT DATE: 20210701
